FAERS Safety Report 16775650 (Version 1)
Quarter: 2019Q4

REPORT INFORMATION
  Report Type: Spontaneous
  Country: US (occurrence: US)
  Receive Date: 20190905
  Receipt Date: 20190905
  Transmission Date: 20200122
  Serious: Yes (Other)
  Sender: FDA-Public Use
  Company Number: None

PATIENT
  Age: 41 Year
  Sex: Male
  Weight: 130.5 kg

DRUGS (9)
  1. LAMACTIL [Concomitant]
     Active Substance: LAMOTRIGINE
  2. BUPRENORPHINE AND NALOXONE [Suspect]
     Active Substance: BUPRENORPHINE HYDROCHLORIDE\NALOXONE HYDROCHLORIDE
     Indication: DRUG DEPENDENCE
     Route: 060
  3. AMBIEN [Concomitant]
     Active Substance: ZOLPIDEM TARTRATE
  4. KLONOPIN [Concomitant]
     Active Substance: CLONAZEPAM
  5. ASPIRIN 81MG [Concomitant]
     Active Substance: ASPIRIN
  6. LANTUS NOVOLOG [Concomitant]
  7. GABAPENTIN. [Concomitant]
     Active Substance: GABAPENTIN
  8. VITAMIN D [Concomitant]
     Active Substance: VITAMIN D NOS
  9. WELLBUTRIN XL [Concomitant]
     Active Substance: BUPROPION HYDROCHLORIDE

REACTIONS (4)
  - Product substitution issue [None]
  - Drug withdrawal syndrome [None]
  - Therapeutic product effect decreased [None]
  - Drug dependence [None]

NARRATIVE: CASE EVENT DATE: 20190821
